FAERS Safety Report 6451164-X (Version None)
Quarter: 2009Q4

REPORT INFORMATION
  Report Type: 
  Country: None (occurrence: None)
  Receive Date: 20091123
  Receipt Date: 20090327
  Transmission Date: 20100525
  Serious: Yes (Other)
  Sender: FDA-Public Use
  Company Number: US-AMGEN-QUU331031

PATIENT
  Sex: Female

DRUGS (2)
  1. ENBREL [Suspect]
     Indication: PSORIATIC ARTHROPATHY
     Route: 030
     Dates: start: 20060512, end: 20081001
  2. FOSAMAX [Concomitant]

REACTIONS (1)
  - VULVAL CANCER STAGE 0 [None]
